FAERS Safety Report 4999453-X (Version None)
Quarter: 2006Q2

REPORT INFORMATION
  Report Type: 
  Country: None (occurrence: None)
  Receive Date: 20060509
  Receipt Date: 20060509
  Transmission Date: 20061013
  Serious: Yes (Life-Threatening)
  Sender: FDA-Public Use
  Company Number: None

PATIENT
  Age: 27 Year
  Sex: Female

DRUGS (4)
  1. HYDROMORPHONE HCL [Suspect]
     Indication: PAIN
     Dosage: .2 MG 1 HR BASAL  1 MG EVERY 20 MINUTES PRN
     Dates: start: 20050907, end: 20050908
  2. CLINDAMYCIN [Concomitant]
  3. LANSOPRAZOLE [Concomitant]
  4. DEXAMETHASONE [Concomitant]

REACTIONS (4)
  - DYSPNOEA [None]
  - OBSTRUCTIVE AIRWAYS DISORDER [None]
  - OXYGEN SATURATION DECREASED [None]
  - RESPIRATORY RATE INCREASED [None]
